FAERS Safety Report 20288779 (Version 1)
Quarter: 2022Q1

REPORT INFORMATION
  Report Type: Other
  Country: US (occurrence: None)
  Receive Date: 20220104
  Receipt Date: 20220104
  Transmission Date: 20220423
  Serious: Yes (Other)
  Sender: FDA-Public Use
  Company Number: US-ROCHE-2992869

PATIENT
  Sex: Female

DRUGS (10)
  1. ACTEMRA [Suspect]
     Active Substance: TOCILIZUMAB
     Indication: Rheumatoid arthritis
     Dosage: INJECT 162MG SUBCUTANEOUSLY EVERY WEEK
     Route: 058
  2. ACTEMRA [Suspect]
     Active Substance: TOCILIZUMAB
  3. ALENDRONATE [Concomitant]
     Active Substance: ALENDRONATE SODIUM
  4. ASPIRIN [Concomitant]
     Active Substance: ASPIRIN
  5. CALCIUM [Concomitant]
     Active Substance: CALCIUM
  6. DRONEDARONE [Concomitant]
     Active Substance: DRONEDARONE
  7. FERROUS SULFATE [Concomitant]
     Active Substance: FERROUS SULFATE
  8. LEVOTHYROXINE [Concomitant]
     Active Substance: LEVOTHYROXINE
  9. METOPROLOL TARTRATE [Concomitant]
     Active Substance: METOPROLOL TARTRATE
  10. PRAVASTATIN [Concomitant]
     Active Substance: PRAVASTATIN

REACTIONS (13)
  - Spinal fracture [Unknown]
  - Pain [Unknown]
  - Dyslipidaemia [Unknown]
  - Chronic kidney disease [Unknown]
  - Osteoporosis [Unknown]
  - Blood alkaline phosphatase increased [Unknown]
  - Tremor [Unknown]
  - Obesity [Unknown]
  - Vitamin D deficiency [Unknown]
  - Autoimmune thyroiditis [Unknown]
  - Rotator cuff syndrome [Unknown]
  - Iron deficiency anaemia [Unknown]
  - Dyspnoea [Unknown]
